FAERS Safety Report 8070921-X (Version None)
Quarter: 2012Q1

REPORT INFORMATION
  Report Type: 
  Country: None (occurrence: None)
  Receive Date: 20120125
  Receipt Date: 20120118
  Transmission Date: 20120608
  Serious: Yes (Death)
  Sender: FDA-Public Use
  Company Number: JP-ROCHE-1032520

PATIENT
  Age: 6 Decade
  Sex: Female

DRUGS (9)
  1. AVASTIN [Suspect]
     Indication: RECTAL CANCER RECURRENT
     Dosage: DOSAGE IS UNCERTAIN.
     Route: 041
  2. FLUOROURACIL [Concomitant]
     Dosage: DOSAGE IS UNCERTAIN.
     Route: 041
  3. LEVOLEUCOVORIN CALCIUM [Concomitant]
     Indication: RECTAL CANCER RECURRENT
     Dosage: DOSAGE IS UNCERTAIN.
     Route: 041
  4. IRINOTECAN HYDROCHLORIDE [Concomitant]
     Indication: RECTAL CANCER RECURRENT
     Dosage: DOSAGE IS UNCERTAIN.
     Route: 041
  5. FLUOROURACIL [Concomitant]
     Dosage: DOSAGE IS UNCERTAIN.
     Route: 041
  6. LEVOLEUCOVORIN CALCIUM [Concomitant]
     Dosage: DOSAGE IS UNCERTAIN.
     Route: 041
  7. OXALIPLATIN [Concomitant]
     Indication: RECTAL CANCER RECURRENT
     Dosage: DOSAGE IS UNCERTAIN.
     Route: 041
  8. FLUOROURACIL [Concomitant]
     Indication: RECTAL CANCER RECURRENT
     Dosage: DOSAGE IS UNCERTAIN.
     Route: 040
  9. FLUOROURACIL [Concomitant]
     Dosage: DOSAGE IS UNCERTAIN.
     Route: 040

REACTIONS (2)
  - DISEASE PROGRESSION [None]
  - UNEVALUABLE EVENT [None]
